APPROVED DRUG PRODUCT: ERYTHROMYCIN
Active Ingredient: ERYTHROMYCIN
Strength: 500MG
Dosage Form/Route: TABLET, DELAYED RELEASE;ORAL
Application: A211975 | Product #002 | TE Code: AB
Applicant: TORRENT PHARMA INC
Approved: Jul 26, 2021 | RLD: No | RS: No | Type: RX